FAERS Safety Report 4309326-3 (Version None)
Quarter: 2004Q1

REPORT INFORMATION
  Report Type: 
  Country: None (occurrence: None)
  Receive Date: 20040302
  Receipt Date: 20040218
  Transmission Date: 20041129
  Serious: Yes (Other)
  Sender: FDA-Public Use
  Company Number: FR-GLAXOSMITHKLINE-B0323740A

PATIENT
  Age: 16 Year
  Sex: Female

DRUGS (3)
  1. ZOPHREN [Suspect]
     Indication: PROPHYLAXIS OF NAUSEA AND VOMITING
     Dosage: 8MG TWICE PER DAY
     Route: 042
  2. VP 16 [Concomitant]
     Route: 042
  3. CARBOPLATINE [Concomitant]
     Route: 042

REACTIONS (5)
  - BRAIN SCAN ABNORMAL [None]
  - CHOREOATHETOSIS [None]
  - CONFUSIONAL STATE [None]
  - DYSTONIA [None]
  - NERVOUS SYSTEM DISORDER [None]
